FAERS Safety Report 7960310-8 (Version None)
Quarter: 2011Q4

REPORT INFORMATION
  Report Type: 
  Country: None (occurrence: None)
  Receive Date: 20111206
  Receipt Date: 20111205
  Transmission Date: 20120403
  Serious: Yes (Death, Other)
  Sender: FDA-Public Use
  Company Number: PHFR2011IE006767

PATIENT
  Sex: Male

DRUGS (3)
  1. GLUCOPHAGE [Concomitant]
     Dosage: 850 MG, QD
     Route: 048
  2. EFFEXOR XR [Concomitant]
     Dosage: 150 MG, QD
     Route: 048
  3. CLOZARIL [Suspect]
     Indication: SCHIZOPHRENIA
     Dates: start: 20041026

REACTIONS (4)
  - GENERAL PHYSICAL HEALTH DETERIORATION [None]
  - DIABETES MELLITUS INADEQUATE CONTROL [None]
  - DEATH [None]
  - DIABETES MELLITUS [None]
